FAERS Safety Report 4515996-7 (Version None)
Quarter: 2004Q4

REPORT INFORMATION
  Report Type: 
  Country: None (occurrence: None)
  Receive Date: 20041129
  Receipt Date: 20041117
  Transmission Date: 20050328
  Serious: Yes (Death, Hospitalization)
  Sender: FDA-Public Use
  Company Number: 2004095271

PATIENT

DRUGS (1)
  1. FRAGMIN [Suspect]
     Indication: ILL-DEFINED DISORDER
     Dosage: 5000 I.U. (5000 I.U.)

REACTIONS (2)
  - PULMONARY VENOUS THROMBOSIS [None]
  - THERAPY NON-RESPONDER [None]
